FAERS Safety Report 8383785-1 (Version None)
Quarter: 2012Q2

REPORT INFORMATION
  Report Type: 
  Country: None (occurrence: None)
  Receive Date: 20120524
  Receipt Date: 20120515
  Transmission Date: 20120825
  Serious: Yes (Hospitalization)
  Sender: FDA-Public Use
  Company Number: BR-ASTRAZENECA-2012SE31757

PATIENT
  Age: 91 Year
  Sex: Female
  Weight: 63 kg

DRUGS (2)
  1. ATACAND [Suspect]
     Indication: HYPERTENSION
     Route: 048
     Dates: start: 20100101, end: 20120301
  2. ATACAND [Suspect]
     Dosage: GENERIC, ONCE DAILY
     Route: 048
     Dates: start: 20120301

REACTIONS (2)
  - ULCER [None]
  - ARTHRITIS [None]
